FAERS Safety Report 15298654 (Version 1)
Quarter: 2018Q3

REPORT INFORMATION
  Report Type: Spontaneous
  Country: DE (occurrence: DE)
  Receive Date: 20180820
  Receipt Date: 20180820
  Transmission Date: 20181010
  Serious: Yes (Death)
  Sender: FDA-Public Use
  Company Number: DE-NAPPMUNDI-GBR-2018-0052587

PATIENT
  Age: 70 Year
  Sex: Female

DRUGS (2)
  1. PALLADON [Suspect]
     Active Substance: HYDROMORPHONE
     Indication: PAIN
     Dosage: 2 MG, PRN
     Route: 058
  2. PALLADON [Concomitant]
     Active Substance: HYDROMORPHONE
     Indication: PAIN
     Dosage: 40 MG, DAILY (24 HOURS)
     Route: 037

REACTIONS (2)
  - Injection site pain [Unknown]
  - Death [Fatal]
